FAERS Safety Report 7932647-X (Version None)
Quarter: 2011Q4

REPORT INFORMATION
  Report Type: 
  Country: None (occurrence: None)
  Receive Date: 20111122
  Receipt Date: 20111117
  Transmission Date: 20120403
  Serious: Yes (Death, Hospitalization)
  Sender: FDA-Public Use
  Company Number: KR-BRISTOL-MYERS SQUIBB COMPANY-16202384

PATIENT
  Age: 67 Year
  Sex: Female
  Weight: 47 kg

DRUGS (31)
  1. ACETYLCYSTEINE [Concomitant]
     Dates: start: 20110907
  2. ATENOLOL [Concomitant]
     Dates: start: 20110101, end: 20111004
  3. ROCURONIUM BROMIDE [Concomitant]
     Dates: start: 20110930, end: 20110930
  4. MIDAZOLAM [Concomitant]
     Dates: start: 20110930, end: 20110930
  5. NICARDIPINE HCL [Concomitant]
     Dates: start: 20111001, end: 20111004
  6. DOMPERIDONE [Concomitant]
     Dates: start: 20110907
  7. BARIUM SULFATE [Concomitant]
     Dates: start: 20110101, end: 20110927
  8. PREDNISOLONE [Concomitant]
     Dates: start: 20110927, end: 20111008
  9. ATROPINE [Concomitant]
     Dates: start: 20110928, end: 20110928
  10. FUROSEMIDE [Concomitant]
  11. INSULIN ASPART [Concomitant]
     Dates: start: 20111004, end: 20111017
  12. RANITIDINE [Concomitant]
     Dates: start: 20110928, end: 20110928
  13. TAMSULOSIN HCL [Concomitant]
     Dates: start: 20110831, end: 20110930
  14. SEPTRA [Concomitant]
     Dates: start: 20110927, end: 20111008
  15. MOXIFLOXACIN [Concomitant]
     Dates: start: 20110928, end: 20110928
  16. DEXTROSE [Concomitant]
  17. BETHANECHOL CHLORIDE [Concomitant]
     Dates: start: 20110928, end: 20110930
  18. IPRATROPIUM BROMIDE [Concomitant]
  19. VANCOMYCIN [Concomitant]
     Dates: start: 20110930, end: 20111013
  20. PACLITAXEL [Suspect]
     Indication: GASTRIC CANCER
     Dosage: PRIOR TO EVENT: 16SEP11.
     Route: 042
     Dates: start: 20110803, end: 20110916
  21. MEGESTROL ACETATE [Concomitant]
     Dates: start: 20110907
  22. AMINOPHYLLINE [Concomitant]
     Dates: start: 20110928, end: 20110930
  23. ALBUTEROL SULFATE AUTOHALER [Concomitant]
  24. VECURONIUM BROMIDE [Concomitant]
     Dates: start: 20110930, end: 20111004
  25. DOPAMINE HCL [Concomitant]
     Dates: start: 20111010, end: 20111010
  26. QUETIAPINE FUMARATE [Concomitant]
     Dates: start: 20110927, end: 20110927
  27. TAZOBACTAM [Concomitant]
     Dates: start: 20110930, end: 20111013
  28. SODIUM CHLORIDE [Concomitant]
     Dates: start: 20111001, end: 20111003
  29. HYDROCHLOROTHIAZIDE [Concomitant]
     Dates: start: 20110101, end: 20111004
  30. MEPERIDINE HCL [Concomitant]
     Dates: start: 20110928, end: 20110928
  31. ACETAMINOPHEN [Concomitant]
     Dates: start: 20110930, end: 20110930

REACTIONS (3)
  - MULTI-ORGAN FAILURE [None]
  - SEPTIC SHOCK [None]
  - ACUTE RESPIRATORY DISTRESS SYNDROME [None]
